FAERS Safety Report 6300910-4 (Version None)
Quarter: 2009Q3

REPORT INFORMATION
  Report Type: 
  Country: None (occurrence: None)
  Receive Date: 20090807
  Receipt Date: 20090723
  Transmission Date: 20100115
  Serious: Yes (Hospitalization)
  Sender: FDA-Public Use
  Company Number: US-JNJFOC-20090400788

PATIENT
  Sex: Male
  Weight: 78.5 kg

DRUGS (21)
  1. DARUNAVIR [Suspect]
     Indication: HIV INFECTION
     Route: 048
  2. ETRAVIRINE [Suspect]
     Indication: HIV INFECTION
     Route: 048
  3. RALTEGRAVIR [Suspect]
     Indication: HIV INFECTION
     Route: 048
  4. RITONAVIR [Suspect]
     Indication: HIV INFECTION
     Route: 048
  5. EPZICOM [Suspect]
     Indication: HIV INFECTION
     Route: 048
  6. GEMFIBROZIL [Concomitant]
  7. TADALAFIL [Concomitant]
  8. NIACIN [Concomitant]
  9. FEXOFENADINE [Concomitant]
  10. FLUOXEDINE [Concomitant]
  11. HYOSCYAMINE [Concomitant]
  12. LISINOPRIL [Concomitant]
  13. LOMOTIL [Concomitant]
  14. LOPERAMIDE HYDROCHLORIDE [Concomitant]
  15. LORAZEPAM [Concomitant]
  16. ASPIRIN [Concomitant]
  17. FISH OIL [Concomitant]
  18. MARIJUANA [Concomitant]
  19. VITAMIN D3 [Concomitant]
  20. OMEPRAZOLE [Concomitant]
  21. MULTI-VITAMINS [Concomitant]

REACTIONS (1)
  - CHEST PAIN [None]
